FAERS Safety Report 14684281 (Version 1)
Quarter: 2018Q1

REPORT INFORMATION
  Report Type: Spontaneous
  Country: PT (occurrence: PT)
  Receive Date: 20180327
  Receipt Date: 20180327
  Transmission Date: 20180509
  Serious: Yes (Disabling, Other)
  Sender: FDA-Public Use
  Company Number: PHHY2017PT201905

PATIENT
  Age: 72 Year
  Sex: Female

DRUGS (2)
  1. AMOXICILINA CLAV [Concomitant]
     Indication: PRODUCT USED FOR UNKNOWN INDICATION
     Route: 065
  2. METRONIDAZOLE. [Suspect]
     Active Substance: METRONIDAZOLE
     Indication: PRODUCT USED FOR UNKNOWN INDICATION
     Dosage: 500 MG, 8 HOUR
     Route: 065

REACTIONS (11)
  - Nuclear magnetic resonance imaging brain abnormal [Recovered/Resolved]
  - Speech disorder [Recovered/Resolved]
  - Disorientation [Recovered/Resolved]
  - Nervous system disorder [Recovered/Resolved]
  - Hypoaesthesia [Recovering/Resolving]
  - Ataxia [Recovered/Resolved]
  - Acute motor-sensory axonal neuropathy [Recovering/Resolving]
  - Neurotoxicity [Recovered/Resolved]
  - Gait disturbance [Recovered/Resolved]
  - Dysarthria [Recovered/Resolved]
  - Cognitive disorder [Recovered/Resolved]
